FAERS Safety Report 6198756-3 (Version None)
Quarter: 2009Q2

REPORT INFORMATION
  Report Type: 
  Country: None (occurrence: None)
  Receive Date: 20090521
  Receipt Date: 20090513
  Transmission Date: 20091009
  Serious: Yes (Hospitalization, Other)
  Sender: FDA-Public Use
  Company Number: US-BAXTER-2009BH008773

PATIENT
  Age: 48 Year
  Sex: Female

DRUGS (37)
  1. PHENERGAN [Suspect]
     Indication: NAUSEA
     Route: 042
     Dates: start: 20090315, end: 20090315
  2. CALCITRIOL [Concomitant]
     Indication: HYPOCALCAEMIA
     Route: 048
  3. CALCIUM CARBONATE [Concomitant]
     Indication: HYPOCALCAEMIA
     Route: 048
  4. NORVASC [Concomitant]
     Indication: HYPERTENSION
     Route: 048
  5. CALCITRIOL [Concomitant]
     Route: 048
  6. CALCIUM ACETATE [Concomitant]
     Indication: HYPOCALCAEMIA
     Route: 048
  7. CALCIUM CARBONATE W/VITAMIN D NOS [Concomitant]
     Indication: HYPOCALCAEMIA
     Route: 048
  8. COREG [Concomitant]
     Indication: HYPERTENSION
     Route: 048
  9. CLONIDINE [Concomitant]
     Indication: HYPERTENSION
     Route: 048
  10. ARANESP [Concomitant]
     Indication: ANAEMIA
     Route: 058
  11. COLACE [Concomitant]
     Indication: CONSTIPATION
     Route: 048
  12. VITAMIN D [Concomitant]
     Indication: DRUG USE FOR UNKNOWN INDICATION
     Route: 048
  13. FENTANYL [Concomitant]
     Indication: PAIN
     Route: 062
  14. PROZAC [Concomitant]
     Indication: DEPRESSION
     Route: 048
  15. DILAUDID [Concomitant]
     Indication: PAIN
     Route: 048
  16. KEPPRA [Concomitant]
     Indication: DRUG USE FOR UNKNOWN INDICATION
     Route: 048
  17. SYNTHROID [Concomitant]
     Indication: DRUG USE FOR UNKNOWN INDICATION
     Route: 048
  18. MAGNESIUM OXIDE [Concomitant]
     Indication: LABORATORY TEST
     Route: 048
  19. LOPRESSOR [Concomitant]
     Indication: HYPERTENSION
     Route: 048
  20. PRILOSEC [Concomitant]
     Indication: DYSPEPSIA
     Route: 048
  21. RENAGEL [Concomitant]
     Indication: RENAL DISORDER
     Route: 048
  22. BACTRIM DS [Concomitant]
     Indication: INFECTION
     Route: 048
  23. EFFEXOR [Concomitant]
     Indication: DEPRESSION
     Route: 048
  24. MINOCYCLINE HCL [Concomitant]
     Indication: INFECTION
     Route: 048
  25. CEFEPIME [Concomitant]
     Indication: INFECTION
     Route: 042
  26. PRIMAXIN [Concomitant]
     Indication: INFECTION
     Route: 042
  27. TOBRAMYCIN [Concomitant]
     Indication: INFECTION
     Route: 042
  28. XANAX [Concomitant]
     Indication: ANXIETY
     Route: 048
  29. DULCOLAX [Concomitant]
     Indication: CONSTIPATION
     Route: 048
  30. FENTANYL [Concomitant]
     Route: 048
  31. DILAUDID [Concomitant]
     Route: 048
  32. ZOFRAN [Concomitant]
     Indication: NAUSEA
     Route: 042
  33. PHENERGAN [Concomitant]
     Route: 042
  34. AMBIEN [Concomitant]
     Indication: INSOMNIA
     Route: 048
  35. TRAMADOL HCL [Concomitant]
     Indication: PAIN
     Route: 048
  36. DIANEAL [Concomitant]
     Indication: PERITONEAL DIALYSIS
     Route: 033
     Dates: start: 20081101
  37. DIANEAL [Concomitant]
     Indication: PERITONEAL DIALYSIS
     Route: 033
     Dates: start: 20081101

REACTIONS (4)
  - INJECTION SITE EXTRAVASATION [None]
  - INJECTION SITE REACTION [None]
  - PSEUDOMONAS INFECTION [None]
  - SKIN NECROSIS [None]
